FAERS Safety Report 16772254 (Version 2)
Quarter: 2019Q4

REPORT INFORMATION
  Report Type: Spontaneous
  Country: JP (occurrence: JP)
  Receive Date: 20190904
  Receipt Date: 20191231
  Transmission Date: 20200122
  Serious: Yes (Hospitalization, Other)
  Sender: FDA-Public Use
  Company Number: JP-PFIZER INC-2019375393

PATIENT
  Age: 70 Year
  Sex: Male

DRUGS (13)
  1. VFEND [Suspect]
     Active Substance: VORICONAZOLE
     Indication: ORAL CANDIDIASIS
     Dosage: 300 MG, 2X/DAY
     Route: 048
     Dates: start: 20190815, end: 20190823
  2. JANUVIA [Concomitant]
     Active Substance: SITAGLIPTIN PHOSPHATE
     Indication: THERAPEUTIC PROCEDURE
     Dosage: 50 MG, 1X/DAY
     Route: 048
     Dates: start: 20190726
  3. PROGRAF [Suspect]
     Active Substance: TACROLIMUS
     Dosage: 2 MG, 1X/DAY
     Route: 048
     Dates: start: 20171005, end: 20190822
  4. ALENDRONATE [Concomitant]
     Active Substance: ALENDRONATE SODIUM
     Indication: PROPHYLAXIS
     Dosage: 35 MG, WEEKLY
     Dates: start: 20190726
  5. BELSOMRA [Concomitant]
     Active Substance: SUVOREXANT
     Indication: THERAPEUTIC PROCEDURE
     Dosage: 15 MG, 1X/DAY
     Route: 048
     Dates: start: 20190620
  6. LAC-B [Concomitant]
     Active Substance: BIFIDOBACTERIUM SPP.
     Indication: PROPHYLAXIS
     Dosage: 2 P, 2X/DAY
     Route: 048
     Dates: start: 20190829
  7. PREDONINE [Concomitant]
     Active Substance: PREDNISOLONE
     Dosage: 10/5 MG 3X/DAY
     Route: 048
     Dates: start: 20190627
  8. IRBESARTAN. [Concomitant]
     Active Substance: IRBESARTAN
     Indication: THERAPEUTIC PROCEDURE
     Dosage: 100 MG, 1X/DAY
     Route: 048
     Dates: start: 20180309
  9. DAIPHEN [Suspect]
     Active Substance: SULFAMETHOXAZOLE\TRIMETHOPRIM
     Indication: PROPHYLAXIS
     Dosage: 1 DF, 1X/DAY
     Route: 048
     Dates: start: 20190705, end: 20190822
  10. BAKTAR [Suspect]
     Active Substance: SULFAMETHOXAZOLE\TRIMETHOPRIM
     Dosage: 1 DF, DAILY
     Route: 048
     Dates: start: 201907, end: 20190823
  11. AMLODIPINE [Concomitant]
     Active Substance: AMLODIPINE BESYLATE
     Indication: THERAPEUTIC PROCEDURE
     Dosage: 2.5 MG, 1X/DAY
     Route: 048
     Dates: start: 20180309
  12. LIXIANA [Concomitant]
     Active Substance: EDOXABAN TOSYLATE
     Indication: HYPERTENSION
     Dosage: 30 MG, 1X/DAY
     Route: 048
     Dates: start: 20190620
  13. VOGLIBOSE [Concomitant]
     Active Substance: VOGLIBOSE
     Indication: THERAPEUTIC PROCEDURE
     Dosage: 0.3 MG, 3X/DAY
     Route: 048
     Dates: start: 20190729

REACTIONS (5)
  - Abdominal discomfort [Recovered/Resolved]
  - Renal impairment [Recovered/Resolved]
  - Hyperkalaemia [Recovered/Resolved]
  - Drug level increased [Recovered/Resolved]
  - Hepatic enzyme increased [Unknown]

NARRATIVE: CASE EVENT DATE: 20190823
